FAERS Safety Report 8935779 (Version 1)
Quarter: 2012Q4

REPORT INFORMATION
  Report Type: 
  Country: ES (occurrence: ES)
  Receive Date: 20121130
  Receipt Date: 20121130
  Transmission Date: 20130627
  Serious: Yes (Other)
  Sender: FDA-Public Use
  Company Number: ES-SANOFI-AVENTIS-2012SA086652

PATIENT
  Age: 88 Year
  Sex: Female

DRUGS (5)
  1. PLAVIX [Suspect]
     Indication: ANGINA PECTORIS
     Route: 048
     Dates: start: 2000, end: 2011
  2. PLAVIX [Suspect]
     Indication: ANGINA PECTORIS
     Route: 048
     Dates: start: 20121031, end: 20121119
  3. BISOPROLOL [Concomitant]
  4. HEMOVAS [Concomitant]
     Indication: DISORDER CIRCULATORY SYSTEM
  5. COZAAR [Concomitant]
     Indication: HYPERTENSIVE

REACTIONS (2)
  - Erysipelas [Recovered/Resolved]
  - Generalised erythema [Recovering/Resolving]
